FAERS Safety Report 6763117-2 (Version None)
Quarter: 2010Q2

REPORT INFORMATION
  Report Type: 
  Country: None (occurrence: None)
  Receive Date: 20100609
  Receipt Date: 20100531
  Transmission Date: 20101027
  Serious: Yes (Hospitalization)
  Sender: FDA-Public Use
  Company Number: AR-AMGEN-QUU414230

PATIENT
  Age: 26 Year
  Sex: Female

DRUGS (5)
  1. ENBREL [Suspect]
     Indication: JUVENILE ARTHRITIS
     Route: 058
     Dates: start: 20100505, end: 20100519
  2. CALCIUM PHOSPHATE/CALCIUM SODIUM LACTATE/ERGOCALCIFEROL [Concomitant]
     Route: 048
     Dates: end: 20100301
  3. IBANDRONATE SODIUM [Concomitant]
     Route: 048
     Dates: end: 20100301
  4. METHOTREXATE [Concomitant]
     Route: 048
     Dates: end: 20100501
  5. MEPREDNISONE [Concomitant]
     Dosage: 4-6 MG/ ALTERNATE DAYS
     Route: 048
     Dates: end: 20100301

REACTIONS (7)
  - CARDIAC FAILURE [None]
  - CONJUNCTIVAL HYPERAEMIA [None]
  - MOUTH HAEMORRHAGE [None]
  - MUCOSAL INFLAMMATION [None]
  - MUSCULOSKELETAL STIFFNESS [None]
  - PYREXIA [None]
  - RESPIRATORY FAILURE [None]
